FAERS Safety Report 15846839 (Version 1)
Quarter: 2019Q1

REPORT INFORMATION
  Report Type: Spontaneous
  Country: GB (occurrence: GB)
  Receive Date: 20190121
  Receipt Date: 20190121
  Transmission Date: 20190417
  Serious: Yes (Disabling, Other)
  Sender: FDA-Public Use
  Company Number: GB-TEVA-2019-GB-1001057

PATIENT
  Age: 52 Year
  Sex: Female
  Weight: 82 kg

DRUGS (4)
  1. SERTRALINE [Concomitant]
     Active Substance: SERTRALINE HYDROCHLORIDE
     Dosage: 150 MILLIGRAM DAILY;
     Route: 048
     Dates: start: 2016
  2. CLOMIPRAMINE [Suspect]
     Active Substance: CLOMIPRAMINE
     Indication: HYPERVENTILATION
     Dosage: 150 MG
     Route: 048
     Dates: start: 20181023, end: 20181129
  3. PROPRANOLOL [Concomitant]
     Active Substance: PROPRANOLOL HYDROCHLORIDE
     Dosage: 60 MILLIGRAM DAILY;
     Route: 048
     Dates: start: 20141218
  4. SUMATRIPTAN. [Concomitant]
     Active Substance: SUMATRIPTAN
     Dosage: 50 MG
     Route: 048

REACTIONS (3)
  - Dysgeusia [Recovering/Resolving]
  - Jaundice [Recovering/Resolving]
  - Thirst [Recovering/Resolving]

NARRATIVE: CASE EVENT DATE: 20181030
